FAERS Safety Report 8459039-1 (Version None)
Quarter: 2012Q2

REPORT INFORMATION
  Report Type: 
  Country: None (occurrence: None)
  Receive Date: 20120618
  Receipt Date: 20120607
  Transmission Date: 20120825
  Serious: Yes (Hospitalization)
  Sender: FDA-Public Use
  Company Number: UTC-017707

PATIENT
  Age: 53 Year
  Sex: Male
  Weight: 73.41 kg

DRUGS (4)
  1. REVATIO [Concomitant]
  2. TYVASO [Suspect]
     Indication: COR PULMONALE CHRONIC
     Dosage: 18054 MICROGRAM (4 IN 1 D)INHALATION
     Route: 055
     Dates: start: 20120313
  3. TYVASO [Suspect]
     Indication: PULMONARY HYPERTENSION
     Dosage: 18054 MICROGRAM (4 IN 1 D)INHALATION
     Route: 055
     Dates: start: 20120313
  4. DIURETICS (DIURETICS) [Concomitant]

REACTIONS (2)
  - PULMONARY HYPERTENSION [None]
  - FLUID OVERLOAD [None]
